FAERS Safety Report 20853632 (Version 1)
Quarter: 2022Q2

REPORT INFORMATION
  Report Type: Spontaneous
  Country: FR (occurrence: FR)
  Receive Date: 20220520
  Receipt Date: 20220520
  Transmission Date: 20220721
  Serious: Yes (Hospitalization)
  Sender: FDA-Public Use
  Company Number: None

PATIENT
  Age: 73 Year
  Sex: Female

DRUGS (3)
  1. NITROFURANTOIN [Suspect]
     Active Substance: NITROFURANTOIN
     Indication: Urinary tract infection
     Dosage: UNIT DOSE 300MG,FREQUENCY TIME 1 DAYS,DURATION 7 DAYS
     Route: 048
     Dates: start: 20211129, end: 20211206
  2. ACTONEL [Concomitant]
     Active Substance: RISEDRONATE SODIUM
     Indication: Osteoporosis
     Dosage: 2 TABLETS PER MONTH
     Route: 048
     Dates: start: 20200101
  3. BROMAZEPAM [Concomitant]
     Active Substance: BROMAZEPAM
     Indication: Anxiety
     Dosage: LEXOMIL BROMAZEPAM 6MG
     Route: 048
     Dates: start: 20200101

REACTIONS (2)
  - Rash papular [Recovered/Resolved]
  - Purpura [Recovered/Resolved]

NARRATIVE: CASE EVENT DATE: 20211203
